FAERS Safety Report 12912754 (Version 2)
Quarter: 2016Q4

REPORT INFORMATION
  Report Type: Report from Study
  Country: US (occurrence: US)
  Receive Date: 20161104
  Receipt Date: 20161205
  Transmission Date: 20170207
  Serious: Yes (Other)
  Sender: FDA-Public Use
  Company Number: US-AMGEN-USASL2016152285

PATIENT
  Age: 66 Year
  Sex: Female

DRUGS (1)
  1. ENBREL [Suspect]
     Active Substance: ETANERCEPT
     Indication: RHEUMATOID ARTHRITIS
     Dosage: 50 MG, QWK
     Route: 065

REACTIONS (8)
  - Parkinson^s disease [Unknown]
  - Cerebrovascular accident [Unknown]
  - Protein S deficiency [Unknown]
  - Torticollis [Unknown]
  - IVth nerve injury [Unknown]
  - Posture abnormal [Unknown]
  - Diplopia [Unknown]
  - IVth nerve disorder [Unknown]
